FAERS Safety Report 25920073 (Version 1)
Quarter: 2025Q4

REPORT INFORMATION
  Report Type: Spontaneous
  Country: US (occurrence: None)
  Receive Date: 20251014
  Receipt Date: 20251014
  Transmission Date: 20260117
  Serious: Yes (Death, Hospitalization)
  Sender: FDA-CTU
  Company Number: None

PATIENT
  Age: 78 Year
  Sex: Male
  Weight: 64.9 kg

DRUGS (1)
  1. TICE BCG [Suspect]
     Active Substance: BACILLUS CALMETTE-GUERIN SUBSTRAIN TICE LIVE ANTIGEN
     Dates: start: 20250227, end: 20250619

REACTIONS (22)
  - Leukocytosis [None]
  - Urinary tract infection [None]
  - Acute myocardial infarction [None]
  - Genitourinary tract infection [None]
  - Sepsis [None]
  - Hypokalaemia [None]
  - Toxic encephalopathy [None]
  - Sinus tachycardia [None]
  - Atrial tachycardia [None]
  - Pulmonary oedema [None]
  - Organising pneumonia [None]
  - Pneumonitis aspiration [None]
  - Hypophagia [None]
  - Decreased appetite [None]
  - Acute respiratory failure [None]
  - Pleural effusion [None]
  - Laboratory test abnormal [None]
  - Citrobacter bacteraemia [None]
  - Pyelonephritis [None]
  - Device related infection [None]
  - Dermatitis [None]
  - Dysphagia [None]

NARRATIVE: CASE EVENT DATE: 20250910
